FAERS Safety Report 25974351 (Version 1)
Quarter: 2025Q4

REPORT INFORMATION
  Report Type: Spontaneous
  Country: EU (occurrence: EU)
  Receive Date: 20251029
  Receipt Date: 20251029
  Transmission Date: 20260117
  Serious: Yes (Hospitalization)
  Sender: NOVARTIS
  Company Number: None

PATIENT
  Age: 56 Year
  Sex: Male

DRUGS (1)
  1. KYMRIAH [Suspect]
     Active Substance: TISAGENLECLEUCEL
     Indication: Diffuse large B-cell lymphoma stage IV
     Dosage: 1 DOSAGE FORM, ONCE/SINGLE (2 X 106 - 6 X 108 CELLULES)
     Route: 042
     Dates: start: 20210927, end: 20210927

REACTIONS (2)
  - Cytokine release syndrome [Recovered/Resolved]
  - Magnetic resonance imaging [Recovered/Resolved]

NARRATIVE: CASE EVENT DATE: 20210928
